FAERS Safety Report 15159161 (Version 1)
Quarter: 2018Q3

REPORT INFORMATION
  Report Type: Spontaneous
  Country: US (occurrence: US)
  Receive Date: 20180718
  Receipt Date: 20180718
  Transmission Date: 20181010
  Serious: No
  Sender: FDA-Public Use
  Company Number: US-ASTRAZENECA-2018SE81859

PATIENT
  Sex: Female

DRUGS (1)
  1. BYETTA [Suspect]
     Active Substance: EXENATIDE
     Dosage: 5 UG
     Route: 065

REACTIONS (4)
  - Circumstance or information capable of leading to device use error [Unknown]
  - Device defective [Unknown]
  - Device use error [Unknown]
  - Blood glucose increased [Unknown]
